FAERS Safety Report 18123781 (Version 1)
Quarter: 2020Q3

REPORT INFORMATION
  Report Type: Spontaneous
  Country: US (occurrence: US)
  Receive Date: 20200806
  Receipt Date: 20200806
  Transmission Date: 20201103
  Serious: Yes (Hospitalization)
  Sender: FDA-Public Use
  Company Number: None

PATIENT
  Age: 74 Year
  Sex: Male
  Weight: 64.86 kg

DRUGS (1)
  1. WARFARIN (WARFARIN NA (EXELAN) 5MG TAB) [Suspect]
     Active Substance: WARFARIN SODIUM
     Indication: ATRIAL FIBRILLATION
     Dosage: ?          OTHER FREQUENCY:PM;?
     Route: 048
     Dates: start: 20121221

REACTIONS (4)
  - Haemorrhage [None]
  - International normalised ratio increased [None]
  - Anaemia [None]
  - Decreased appetite [None]

NARRATIVE: CASE EVENT DATE: 20200601
